FAERS Safety Report 8999418 (Version 1)
Quarter: 2013Q1

REPORT INFORMATION
  Report Type: Report from Study
  Country: US (occurrence: US)
  Receive Date: 20130103
  Receipt Date: 20130103
  Transmission Date: 20140127
  Serious: Yes (Other)
  Sender: FDA-Public Use
  Company Number: US-ABBOTT-12P-163-1026523-00

PATIENT
  Age: 53 None
  Sex: Male
  Weight: 83.54 kg

DRUGS (9)
  1. HUMIRA [Suspect]
     Indication: ANKYLOSING SPONDYLITIS
     Dates: start: 2009
  2. LISINOPRIL [Concomitant]
     Indication: MYOCARDIAL INFARCTION
     Dates: start: 2008
  3. VYTORIN [Concomitant]
     Indication: MYOCARDIAL INFARCTION
     Dates: start: 2008
  4. CARVEDILOL [Concomitant]
     Indication: MYOCARDIAL INFARCTION
     Dates: start: 2008
  5. BABY ASPIRIN [Concomitant]
     Indication: MYOCARDIAL INFARCTION
  6. VITAMIN C [Concomitant]
     Indication: PRODUCT USED FOR UNKNOWN INDICATION
  7. VITAMIN D NOS [Concomitant]
     Indication: PRODUCT USED FOR UNKNOWN INDICATION
  8. CALCIUM [Concomitant]
     Indication: PRODUCT USED FOR UNKNOWN INDICATION
  9. NIACIN [Concomitant]
     Indication: PROPHYLAXIS

REACTIONS (7)
  - Peripheral nerve injury [Recovered/Resolved]
  - Nasal septum deviation [Recovering/Resolving]
  - Hypoaesthesia [Recovered/Resolved]
  - Pain in extremity [Recovering/Resolving]
  - Anosmia [Not Recovered/Not Resolved]
  - Ageusia [Not Recovered/Not Resolved]
  - Hypoaesthesia [Recovered/Resolved]
